FAERS Safety Report 14954631 (Version 1)
Quarter: 2018Q2

REPORT INFORMATION
  Report Type: Spontaneous
  Country: US (occurrence: US)
  Receive Date: 20180530
  Receipt Date: 20180530
  Transmission Date: 20180711
  Serious: No
  Sender: FDA-Public Use
  Company Number: US-GLAXOSMITHKLINE-US2018093527

PATIENT
  Sex: Male

DRUGS (11)
  1. NEXIUM [Concomitant]
     Active Substance: ESOMEPRAZOLE MAGNESIUM
  2. PERCOCET [Concomitant]
     Active Substance: ACETAMINOPHEN\OXYCODONE HYDROCHLORIDE
  3. PROAIR HFA [Concomitant]
     Active Substance: ALBUTEROL SULFATE
  4. VALIUM [Concomitant]
     Active Substance: DIAZEPAM
  5. TIZANIDINE. [Concomitant]
     Active Substance: TIZANIDINE
  6. DICLOFENAC [Concomitant]
     Active Substance: DICLOFENAC
  7. INCRUSE ELLIPTA [Suspect]
     Active Substance: UMECLIDINIUM BROMIDE
     Indication: BRONCHITIS
     Dosage: 1 PUFF(S), QD
     Route: 055
     Dates: start: 201803
  8. DEPAKOTE [Concomitant]
     Active Substance: DIVALPROEX SODIUM
  9. DOXAZOSIN [Concomitant]
     Active Substance: DOXAZOSIN\DOXAZOSIN MESYLATE
  10. INCRUSE ELLIPTA [Suspect]
     Active Substance: UMECLIDINIUM BROMIDE
     Indication: DYSPNOEA
  11. RANITIDINE. [Concomitant]
     Active Substance: RANITIDINE

REACTIONS (4)
  - Lower respiratory tract congestion [Unknown]
  - Drug dose omission [Unknown]
  - Productive cough [Unknown]
  - Wrong technique in device usage process [Unknown]
